FAERS Safety Report 19412349 (Version 1)
Quarter: 2021Q2

REPORT INFORMATION
  Report Type: Spontaneous
  Country: PT (occurrence: PT)
  Receive Date: 20210614
  Receipt Date: 20210614
  Transmission Date: 20210717
  Serious: Yes (Other)
  Sender: FDA-Public Use
  Company Number: PT-US-PROVELL PHARMACEUTICALS LLC-9242187

PATIENT
  Sex: Female

DRUGS (1)
  1. EUTHYROX [Suspect]
     Active Substance: LEVOTHYROXINE SODIUM
     Indication: POST PROCEDURAL HYPOTHYROIDISM
     Route: 048

REACTIONS (6)
  - Arthritis [Unknown]
  - Insomnia [Unknown]
  - Mixed connective tissue disease [Unknown]
  - Thyroid mass [Unknown]
  - Alopecia [Unknown]
  - Fatigue [Unknown]
